FAERS Safety Report 7331597-X (Version None)
Quarter: 2011Q1

REPORT INFORMATION
  Report Type: 
  Country: None (occurrence: None)
  Receive Date: 20110304
  Receipt Date: 20110124
  Transmission Date: 20110831
  Serious: Yes (Other)
  Sender: FDA-Public Use
  Company Number: A0909390A

PATIENT
  Sex: Female

DRUGS (2)
  1. KEPPRA [Concomitant]
     Dosage: 750MG TWICE PER DAY
  2. LAMOTRIGINE [Suspect]
     Route: 065

REACTIONS (2)
  - CONVULSION [None]
  - DRUG INEFFECTIVE [None]
